FAERS Safety Report 4406772-4 (Version None)
Quarter: 2004Q3

REPORT INFORMATION
  Report Type: 
  Country: None (occurrence: None)
  Receive Date: 20040715
  Receipt Date: 20040705
  Transmission Date: 20050211
  Serious: Yes (Other)
  Sender: FDA-Public Use
  Company Number: 2004EU001266

PATIENT
  Sex: Female

DRUGS (4)
  1. PROGRAF [Suspect]
     Dosage: ORAL
     Route: 048
     Dates: end: 20040101
  2. PROGRAF [Suspect]
     Dosage: ORAL
     Route: 048
     Dates: start: 20040101
  3. CELLCEPT [Concomitant]
  4. CORTICOSTEROIDS [Concomitant]

REACTIONS (4)
  - COMA [None]
  - DRUG INEFFECTIVE [None]
  - ENCEPHALOPATHY [None]
  - LIVER TRANSPLANT REJECTION [None]
